FAERS Safety Report 20028804 (Version 2)
Quarter: 2021Q4

REPORT INFORMATION
  Report Type: Spontaneous
  Country: US (occurrence: US)
  Receive Date: 20211103
  Receipt Date: 20211115
  Transmission Date: 20220303
  Serious: Yes (Hospitalization, Other)
  Sender: FDA-Public Use
  Company Number: US-NOVARTISPH-NVSC2021US240854

PATIENT
  Age: 59 Year
  Sex: Female

DRUGS (7)
  1. ADAKVEO [Suspect]
     Active Substance: CRIZANLIZUMAB-TMCA
     Indication: Sickle cell anaemia with crisis
     Dosage: 5 MG/KG, QMO (INFUSION)
     Route: 042
     Dates: start: 20211020, end: 20211020
  2. TORADOL [Suspect]
     Active Substance: KETOROLAC TROMETHAMINE
     Indication: Product used for unknown indication
     Dosage: 15 MG (1 DOSE)
     Route: 065
     Dates: start: 20211020
  3. TORADOL [Suspect]
     Active Substance: KETOROLAC TROMETHAMINE
     Dosage: 30 MG (2 DOSES)
     Route: 065
     Dates: start: 20211021
  4. TORADOL [Suspect]
     Active Substance: KETOROLAC TROMETHAMINE
     Dosage: 30 MG (2 DOSES)
     Route: 065
     Dates: start: 20211022
  5. LOSARTAN [Concomitant]
     Active Substance: LOSARTAN
     Indication: Product used for unknown indication
     Dosage: UNK
     Route: 065
  6. LYRICA [Concomitant]
     Active Substance: PREGABALIN
     Indication: Product used for unknown indication
     Dosage: UNK
     Route: 065
  7. FOLIC ACID [Concomitant]
     Active Substance: FOLIC ACID
     Indication: Product used for unknown indication
     Dosage: UNK
     Route: 065

REACTIONS (9)
  - Infusion related reaction [Unknown]
  - Pain [Unknown]
  - Back pain [Unknown]
  - Confusional state [Unknown]
  - Haemolysis [Unknown]
  - Acute kidney injury [Unknown]
  - Liver function test abnormal [Unknown]
  - Mental status changes [Unknown]
  - White blood cell count increased [Unknown]
